FAERS Safety Report 8432198-2 (Version None)
Quarter: 2012Q2

REPORT INFORMATION
  Report Type: 
  Country: None (occurrence: None)
  Receive Date: 20120606
  Receipt Date: 20120521
  Transmission Date: 20120825
  Serious: Yes (Other)
  Sender: FDA-Public Use
  Company Number: FK201201473

PATIENT
  Age: 60 Year
  Sex: Female

DRUGS (4)
  1. CISPLATIN [Suspect]
     Indication: SMALL CELL LUNG CANCER STAGE UNSPECIFIED
  2. DOCETAXEL [Concomitant]
  3. CARBOPLATIN [Concomitant]
  4. GEMCITABINE [Concomitant]

REACTIONS (3)
  - PERIPHERAL ARTERIAL OCCLUSIVE DISEASE [None]
  - ABDOMINAL PAIN LOWER [None]
  - AORTIC THROMBOSIS [None]
